FAERS Safety Report 9680752 (Version 1)
Quarter: 2013Q4

REPORT INFORMATION
  Report Type: Report from Study
  Country: US (occurrence: US)
  Receive Date: 20131111
  Receipt Date: 20131111
  Transmission Date: 20140711
  Serious: Yes (Other)
  Sender: FDA-Public Use
  Company Number: PHEH2013US023044

PATIENT
  Sex: Female

DRUGS (3)
  1. TOBI PODHALER [Suspect]
     Dosage: 112 MG, BID
  2. TOBI [Suspect]
     Dosage: UNK UKN, UNK
  3. TOBI [Suspect]
     Dosage: UNK UKN, UNK

REACTIONS (3)
  - Pulmonary function test decreased [Unknown]
  - Cough [Unknown]
  - Sputum discoloured [Unknown]
